FAERS Safety Report 16113994 (Version 1)
Quarter: 2019Q1

REPORT INFORMATION
  Report Type: Spontaneous
  Country: US (occurrence: US)
  Receive Date: 20190325
  Receipt Date: 20190325
  Transmission Date: 20190418
  Serious: No
  Sender: FDA-Public Use
  Company Number: US-ALLERGAN-1826927US

PATIENT
  Sex: Male
  Weight: 79.37 kg

DRUGS (1)
  1. LUMIGAN [Suspect]
     Active Substance: BIMATOPROST
     Indication: GLAUCOMA
     Dosage: 2 GTT, QHS
     Route: 047
     Dates: end: 20180514

REACTIONS (3)
  - Product container issue [Unknown]
  - Product dose omission [Unknown]
  - Incorrect dose administered [Unknown]
